FAERS Safety Report 4330700-3 (Version None)
Quarter: 2004Q1

REPORT INFORMATION
  Report Type: 
  Country: None (occurrence: None)
  Receive Date: 20040329
  Receipt Date: 20040323
  Transmission Date: 20041129
  Serious: Yes (Other)
  Sender: FDA-Public Use
  Company Number: THQ2004A00311

PATIENT
  Sex: Female

DRUGS (1)
  1. PROSTAP SR (LEUPROLIDE ACETATE) (UNKNOWN) [Suspect]
     Indication: ENDOMETRIOSIS

REACTIONS (3)
  - DEAFNESS [None]
  - EMBOLISM [None]
  - TINNITUS [None]
